FAERS Safety Report 8471010-2 (Version None)
Quarter: 2012Q2

REPORT INFORMATION
  Report Type: 
  Country: None (occurrence: None)
  Receive Date: 20120627
  Receipt Date: 20120620
  Transmission Date: 20120825
  Serious: Yes (Other)
  Sender: FDA-Public Use
  Company Number: CA-ELI_LILLY_AND_COMPANY-CA201206007417

PATIENT
  Age: 63 Year
  Sex: Female

DRUGS (6)
  1. NEXIUM [Concomitant]
  2. CELEBREX [Concomitant]
  3. ENBREL [Concomitant]
  4. FORTEO [Suspect]
     Indication: OSTEOPOROSIS
     Dosage: 20 UG, QD
     Dates: start: 20110505
  5. BIOCAL-D [Concomitant]
  6. PLAQUENIL [Concomitant]

REACTIONS (3)
  - FALL [None]
  - FEMUR FRACTURE [None]
  - IMPAIRED HEALING [None]
